FAERS Safety Report 8827484 (Version 2)
Quarter: 2012Q4

REPORT INFORMATION
  Report Type: 
  Country: JP (occurrence: JP)
  Receive Date: 20121008
  Receipt Date: 20121213
  Transmission Date: 20130627
  Serious: Yes (Life-Threatening, Hospitalization, Other)
  Sender: FDA-Public Use
  Company Number: JP-BAYER-2012-030860

PATIENT
  Age: 54 Year
  Sex: Male
  Weight: 50 kg

DRUGS (9)
  1. NEXAVAR [Suspect]
     Indication: RENAL CELL CARCINOMA
     Dosage: 200 mg, BID
     Route: 048
     Dates: start: 20111122, end: 20111219
  2. NEXAVAR [Suspect]
     Indication: RENAL CELL CARCINOMA
     Dosage: 800 mg daily
     Dates: start: 20111220, end: 20120325
  3. BLOOD AND RELATED PRODUCTS [Concomitant]
  4. SUMIFERON [Concomitant]
     Indication: RENAL CELL CARCINOMA
     Dosage: Daily dose 6 miu
     Dates: start: 20111122, end: 201204
  5. LENDORMIN [Concomitant]
     Dosage: 0.25 mg, HS
     Route: 048
  6. FAMOGAST [Concomitant]
     Dosage: Daily dose 20 mg
     Route: 048
  7. LASIX [Concomitant]
     Dosage: Daily dose 40 mg
     Route: 048
  8. OXYCONTIN [Concomitant]
     Dosage: Daily dose 10 mg
     Route: 048
  9. OXINORM [Concomitant]
     Dosage: 2.5 mg, OM
     Route: 048

REACTIONS (3)
  - Gastrointestinal haemorrhage [Recovered/Resolved]
  - Anaemia [Recovered/Resolved]
  - Enterocolitis [None]
